FAERS Safety Report 25098882 (Version 1)
Quarter: 2025Q1

REPORT INFORMATION
  Report Type: Spontaneous
  Country: JP (occurrence: JP)
  Receive Date: 20250320
  Receipt Date: 20250320
  Transmission Date: 20250409
  Serious: Yes (Other)
  Sender: REGENERON
  Company Number: JP-BAYER-2025A036112

PATIENT
  Sex: Female

DRUGS (3)
  1. EYLEA [Suspect]
     Active Substance: AFLIBERCEPT
     Indication: Choroidal neovascularisation
     Dates: start: 2022, end: 2022
  2. EYLEA [Suspect]
     Active Substance: AFLIBERCEPT
     Dates: start: 2023, end: 2023
  3. EYLEA [Suspect]
     Active Substance: AFLIBERCEPT
     Dates: start: 20241204, end: 20241204

REACTIONS (2)
  - Retinal oedema [Unknown]
  - Therapeutic product effect incomplete [Unknown]

NARRATIVE: CASE EVENT DATE: 20241201
